FAERS Safety Report 5640955-0 (Version None)
Quarter: 2008Q1

REPORT INFORMATION
  Report Type: 
  Country: None (occurrence: None)
  Receive Date: 20080225
  Receipt Date: 20080215
  Transmission Date: 20080703
  Serious: Yes (Death)
  Sender: FDA-Public Use
  Company Number: A0710847A

PATIENT
  Age: 24 Year
  Sex: Male

DRUGS (1)
  1. ADVAIR DISKUS 100/50 [Suspect]
     Indication: ASTHMA
     Dosage: 1 PUFF (S) / PER DAY / INHALED
     Route: 055
     Dates: end: 20080209

REACTIONS (1)
  - SUDDEN DEATH [None]
